FAERS Safety Report 24845564 (Version 1)
Quarter: 2025Q1

REPORT INFORMATION
  Report Type: Spontaneous
  Country: EG (occurrence: EG)
  Receive Date: 20250115
  Receipt Date: 20250115
  Transmission Date: 20250408
  Serious: Yes (Death, Other)
  Sender: HIKMA
  Company Number: EG-HIKMA PHARMACEUTICALS-EG-H14001-25-00370

PATIENT
  Age: 60 Year
  Sex: Male

DRUGS (4)
  1. DOXORUBICIN [Suspect]
     Active Substance: DOXORUBICIN
     Indication: Lymphoma
     Route: 041
  2. CYCLOPHOSPHAMIDE [Suspect]
     Active Substance: CYCLOPHOSPHAMIDE
     Indication: Lymphoma
     Route: 041
  3. VINCRISTINE SULFATE [Suspect]
     Active Substance: VINCRISTINE SULFATE
     Indication: Lymphoma
     Route: 041
  4. NEUPOGEN [Concomitant]
     Active Substance: FILGRASTIM
     Indication: Prophylaxis
     Route: 065

REACTIONS (5)
  - Diarrhoea [Unknown]
  - Somnolence [Unknown]
  - Pyrexia [Unknown]
  - Pulse absent [Unknown]
  - Death [Fatal]

NARRATIVE: CASE EVENT DATE: 20241109
